FAERS Safety Report 9046643 (Version 1)
Quarter: 2013Q1

REPORT INFORMATION
  Report Type: Spontaneous
  Country: US (occurrence: None)
  Receive Date: 20130125
  Receipt Date: 20130125
  Transmission Date: 20140127
  Serious: Yes (Other)
  Sender: FDA-Public Use
  Company Number: None

PATIENT
  Age: 54 Year
  Sex: Male
  Weight: 80.9 kg

DRUGS (1)
  1. BUPROPION XL 300 MG MYLAN [Suspect]
     Indication: FATIGUE
     Dosage: 300 MG QAM  047 (ORAL/PO)
     Route: 048
     Dates: start: 201211, end: 201301

REACTIONS (10)
  - Affective disorder [None]
  - Asthenia [None]
  - Apathy [None]
  - Sleep disorder [None]
  - Increased appetite [None]
  - Weight increased [None]
  - Libido decreased [None]
  - Product substitution issue [None]
  - Product substitution issue [None]
  - Product quality issue [None]
